FAERS Safety Report 14529802 (Version 1)
Quarter: 2018Q1

REPORT INFORMATION
  Report Type: Spontaneous
  Country: US (occurrence: US)
  Receive Date: 20180214
  Receipt Date: 20180214
  Transmission Date: 20180509
  Serious: No
  Sender: FDA-Public Use
  Company Number: US-TEVA-2018-US-849671

PATIENT
  Age: 76 Year
  Sex: Female

DRUGS (5)
  1. METFORMIN HYDROCHLORIDE EXTENDED RELEASE TABLET 500MG AND 1000MG [Suspect]
     Active Substance: METFORMIN HYDROCHLORIDE
     Indication: GLUCOSE TOLERANCE IMPAIRED
     Dates: start: 201708
  2. VITAMIN D [Concomitant]
     Active Substance: CHOLECALCIFEROL
  3. CALCIUM SUPPLEMENT [Concomitant]
     Active Substance: CALCIUM
  4. ALLEGRA-D [Concomitant]
     Active Substance: FEXOFENADINE\PSEUDOEPHEDRINE
  5. VITAMIN B COMPLEX [Concomitant]
     Active Substance: CYANOCOBALAMIN\DEXPANTHENOL\NIACINAMIDE\PYRIDOXINE HYDROCHLORIDE\RIBOFLAVIN 5^-PHOSPHATE SODIUM\THIAMINE HYDROCHLORIDE\VITAMIN B COMPLEX

REACTIONS (4)
  - Alopecia [Unknown]
  - Headache [Unknown]
  - Therapeutic response unexpected [Unknown]
  - Chills [Unknown]

NARRATIVE: CASE EVENT DATE: 201712
